FAERS Safety Report 4693600-5 (Version None)
Quarter: 2005Q2

REPORT INFORMATION
  Report Type: 
  Country: None (occurrence: None)
  Receive Date: 20050617
  Receipt Date: 20050607
  Transmission Date: 20051028
  Serious: Yes (Other)
  Sender: FDA-Public Use
  Company Number: GR-ROCHE-407199

PATIENT
  Sex: Male

DRUGS (2)
  1. ROACCUTAN [Suspect]
     Indication: DRUG USE FOR UNKNOWN INDICATION
     Route: 048
  2. ROACCUTAN [Suspect]
     Dosage: LOWERED DOSE
     Route: 048

REACTIONS (1)
  - WHITE BLOOD CELL COUNT INCREASED [None]
